FAERS Safety Report 4563659-4 (Version None)
Quarter: 2005Q1

REPORT INFORMATION
  Report Type: 
  Country: None (occurrence: None)
  Receive Date: 20050121
  Receipt Date: 20050113
  Transmission Date: 20050727
  Serious: Yes (Disabling)
  Sender: FDA-Public Use
  Company Number: HQWYE464015NOV04

PATIENT
  Sex: Female

DRUGS (1)
  1. EFFEXOR XR [Suspect]
     Indication: DEPRESSION
     Dosage: ONE CAPSULE-ORAL
     Route: 048
     Dates: start: 20041027, end: 20040127

REACTIONS (19)
  - CHILLS [None]
  - CONFUSIONAL STATE [None]
  - DIFFICULTY IN WALKING [None]
  - DISORIENTATION [None]
  - DIZZINESS [None]
  - EMOTIONAL DISORDER [None]
  - EMOTIONAL DISTRESS [None]
  - FEELING ABNORMAL [None]
  - FOOD AVERSION [None]
  - HYPERHIDROSIS [None]
  - LIMB INJURY [None]
  - LOCAL SWELLING [None]
  - LOSS OF CONSCIOUSNESS [None]
  - MALAISE [None]
  - MEMORY IMPAIRMENT [None]
  - PAIN [None]
  - POSTURE ABNORMAL [None]
  - SEDATION [None]
  - VERTIGO [None]
